FAERS Safety Report 7580110-0 (Version None)
Quarter: 2011Q2

REPORT INFORMATION
  Report Type: 
  Country: None (occurrence: None)
  Receive Date: 20110527
  Receipt Date: 20110502
  Transmission Date: 20111010
  Serious: Yes (Other)
  Sender: FDA-Public Use
  Company Number: KV201100070

PATIENT

DRUGS (1)
  1. MAKENA [Suspect]
     Indication: DRUG EXPOSURE DURING PREGNANCY
     Dates: start: 20110330, end: 20110101

REACTIONS (1)
  - PREMATURE BABY [None]
